FAERS Safety Report 24034210 (Version 1)
Quarter: 2024Q3

REPORT INFORMATION
  Report Type: Spontaneous
  Country: US (occurrence: US)
  Receive Date: 20240701
  Receipt Date: 20240701
  Transmission Date: 20241017
  Serious: Yes (Hospitalization, Other)
  Sender: IPCA
  Company Number: US-IPCA LABORATORIES LIMITED-IPC-2024-US-001577

PATIENT

DRUGS (1)
  1. METOPROLOL TARTRATE [Suspect]
     Active Substance: METOPROLOL TARTRATE
     Indication: Pulmonary hypertension
     Dosage: 100 MILLIGRAM
     Route: 048

REACTIONS (6)
  - Cardiogenic shock [Recovering/Resolving]
  - Encephalopathy [Unknown]
  - Condition aggravated [Unknown]
  - Mental disorder [Unknown]
  - Hypoperfusion [Unknown]
  - Peripheral coldness [Unknown]
